FAERS Safety Report 16543329 (Version 1)
Quarter: 2019Q3

REPORT INFORMATION
  Report Type: Spontaneous
  Country: TR (occurrence: TR)
  Receive Date: 20190709
  Receipt Date: 20190709
  Transmission Date: 20191004
  Serious: Yes (Death, Life-Threatening, Hospitalization, Other)
  Sender: FDA-Public Use
  Company Number: TR-LUPIN PHARMACEUTICALS INC.-2019-04081

PATIENT
  Age: 69 Year
  Sex: Female

DRUGS (1)
  1. ATORVASTATIN [Suspect]
     Active Substance: ATORVASTATIN
     Indication: CAROTID ENDARTERECTOMY
     Dosage: 80 MILLIGRAM
     Route: 065

REACTIONS (5)
  - Urosepsis [Fatal]
  - Renal failure [Fatal]
  - Rhabdomyolysis [Fatal]
  - Anamnestic reaction [Fatal]
  - Multiple organ dysfunction syndrome [Fatal]
